FAERS Safety Report 9937107 (Version 2)
Quarter: 2014Q1

REPORT INFORMATION
  Report Type: Spontaneous
  Country: FR (occurrence: FR)
  Receive Date: 20140301
  Receipt Date: 20140307
  Transmission Date: 20141002
  Serious: Yes (Life-Threatening, Hospitalization, Other)
  Sender: FDA-Public Use
  Company Number: FR-ASTRAZENECA-2014SE13570

PATIENT
  Age: 8457 Day
  Sex: Female

DRUGS (1)
  1. INEXIUM [Suspect]
     Indication: GASTROOESOPHAGEAL REFLUX DISEASE
     Route: 048
     Dates: start: 20140109, end: 20140119

REACTIONS (4)
  - Exposure during pregnancy [Unknown]
  - Purpura [Recovered/Resolved]
  - Mucosal haemorrhage [Unknown]
  - Thrombocytopenia [Recovered/Resolved]
